FAERS Safety Report 24954203 (Version 1)
Quarter: 2025Q1

REPORT INFORMATION
  Report Type: Report from Study
  Country: US (occurrence: US)
  Receive Date: 20250211
  Receipt Date: 20250211
  Transmission Date: 20250409
  Serious: Yes (Hospitalization, Other)
  Sender: UCB
  Company Number: US-UCBSA-2025006799

PATIENT

DRUGS (3)
  1. MIDAZOLAM [Suspect]
     Active Substance: MIDAZOLAM
     Indication: Sedation
  2. MIDAZOLAM [Suspect]
     Active Substance: MIDAZOLAM
     Indication: Off label use
  3. FENTANYL [Suspect]
     Active Substance: FENTANYL
     Indication: Sedation

REACTIONS (7)
  - Hypoxia [Unknown]
  - Hospitalisation [Unknown]
  - Procedural nausea [Unknown]
  - Procedural vomiting [Unknown]
  - Bradycardia [Unknown]
  - Drug effective for unapproved indication [Unknown]
  - Off label use [Unknown]
